FAERS Safety Report 10966954 (Version 4)
Quarter: 2020Q3

REPORT INFORMATION
  Report Type: Report from Study
  Country: US (occurrence: US)
  Receive Date: 20150330
  Receipt Date: 20170324
  Transmission Date: 20201104
  Serious: Yes (Death, Hospitalization)
  Sender: FDA-Public Use
  Company Number: US-JNJFOC-20150320868

PATIENT
  Age: 67 Year
  Sex: Male

DRUGS (14)
  1. SIMVASTATIN. [Concomitant]
     Active Substance: SIMVASTATIN
     Route: 048
  2. IBRUTINIB [Suspect]
     Active Substance: IBRUTINIB
     Route: 048
  3. ALLOPURINOL. [Concomitant]
     Active Substance: ALLOPURINOL
     Route: 048
     Dates: start: 20150316
  4. HYDROXYUREA. [Concomitant]
     Active Substance: HYDROXYUREA
     Route: 048
     Dates: start: 20150316
  5. ZOFRAN [Concomitant]
     Active Substance: ONDANSETRON HYDROCHLORIDE
     Route: 048
     Dates: start: 20150316
  6. VORICONAZOLE. [Concomitant]
     Active Substance: VORICONAZOLE
     Route: 048
     Dates: start: 20150316
  7. HUMALOG [Concomitant]
     Active Substance: INSULIN LISPRO
     Route: 058
  8. METAMUCIL [Concomitant]
     Active Substance: PLANTAGO SEED
  9. ACYCLOVIR. [Concomitant]
     Active Substance: ACYCLOVIR
     Route: 048
  10. IBRUTINIB [Suspect]
     Active Substance: IBRUTINIB
     Indication: ACUTE MYELOID LEUKAEMIA
     Route: 048
     Dates: start: 20150302
  11. CYTARABINE. [Suspect]
     Active Substance: CYTARABINE
     Indication: ACUTE MYELOID LEUKAEMIA
     Route: 048
     Dates: start: 20150304
  12. APRISO [Concomitant]
     Active Substance: MESALAMINE
     Route: 048
     Dates: start: 20150303
  13. LANTUS [Concomitant]
     Active Substance: INSULIN GLARGINE
     Route: 058
  14. LOSARTAN. [Concomitant]
     Active Substance: LOSARTAN
     Route: 048

REACTIONS (3)
  - Thrombocytopenia [Recovered/Resolved]
  - Haematemesis [Recovered/Resolved]
  - Cerebral haemorrhage [Fatal]

NARRATIVE: CASE EVENT DATE: 20150318
